FAERS Safety Report 9244105 (Version 1)
Quarter: 2013Q1

REPORT INFORMATION
  Report Type: Spontaneous
  Country: US (occurrence: None)
  Receive Date: 20121123
  Receipt Date: 20121123
  Transmission Date: 20140127
  Serious: No
  Sender: FDA-Public Use
  Company Number: 362805

PATIENT
  Sex: Female

DRUGS (4)
  1. VICTOZA (LIRAGLUTIDE) SOLUTION FOR INJECTION, 6MG/ML [Suspect]
     Indication: PRODUCT USED FOR UNKNOWN INDICATION
     Route: 058
  2. NOVOLOG [Concomitant]
  3. LANTUS (INSULIN GLARGINE) [Concomitant]
  4. METFORMIN (METFORMIN) TABLET [Concomitant]

REACTIONS (1)
  - Blood glucose increased [None]
